FAERS Safety Report 17122172 (Version 1)
Quarter: 2019Q4

REPORT INFORMATION
  Report Type: Spontaneous
  Country: CN (occurrence: CN)
  Receive Date: 20191206
  Receipt Date: 20191206
  Transmission Date: 20200122
  Serious: Yes (Other)
  Sender: FDA-Public Use
  Company Number: CN-PFIZER INC-2019520460

PATIENT
  Age: 12 Day
  Sex: Female
  Weight: 3.37 kg

DRUGS (11)
  1. LI YUE XI [Concomitant]
     Indication: THERAPEUTIC PROCEDURE
     Dosage: 30 UG, 1X/DAY
     Route: 041
     Dates: start: 20191111, end: 20191127
  2. VIAGRA [Suspect]
     Active Substance: SILDENAFIL CITRATE
     Dosage: 0.25 MG/KG, 3X/DAY
     Dates: start: 20191124
  3. UNASYN [Suspect]
     Active Substance: AMPICILLIN SODIUM\SULBACTAM SODIUM
     Indication: PNEUMONIA ACINETOBACTER
     Dosage: 0.17 G, 3X/DAY (30MG/KG)
     Dates: start: 20191123, end: 20191125
  4. MEROPENEM. [Concomitant]
     Active Substance: MEROPENEM
     Dosage: 20 MG/KG, 3X/DAY (INFUSION VIA PUMP INJECTION)
     Dates: end: 20191123
  5. DIFLUCAN [Concomitant]
     Active Substance: FLUCONAZOLE
     Indication: FUNGAL INFECTION
     Dosage: 20 MG, UNK
     Dates: start: 20191120, end: 20191125
  6. LI BANG XI TONG [Concomitant]
     Indication: CONGENITAL DIAPHRAGMATIC HERNIA
     Dosage: 0.005 UG, 1X/DAY
     Route: 041
     Dates: start: 20191114, end: 20191123
  7. DOBUTAMINE HYDROCHLORIDE. [Concomitant]
     Active Substance: DOBUTAMINE HYDROCHLORIDE
     Indication: RIGHT VENTRICULAR FAILURE
     Dosage: 4 UG, 1X/DAY
     Route: 041
     Dates: start: 20191114, end: 20191125
  8. VIAGRA [Suspect]
     Active Substance: SILDENAFIL CITRATE
     Dosage: 0.5 MG/KG, 3X/DAY
     Dates: start: 20191122
  9. VIAGRA [Suspect]
     Active Substance: SILDENAFIL CITRATE
     Indication: PULMONARY ARTERIAL HYPERTENSION
     Dosage: 0.9 MG, 3X/DAY
     Route: 048
     Dates: start: 20191122, end: 20191128
  10. HYDROCORTISONE HYDROGEN SUCCINATE [Concomitant]
     Active Substance: HYDROCORTISONE HEMISUCCINATE ANHYDROUS
     Indication: HYPOTENSION
     Dosage: 3.3 UG, 1X/DAY
     Dates: start: 20191112, end: 20191124
  11. FENTANYL CITRATE. [Concomitant]
     Active Substance: FENTANYL CITRATE
     Indication: PAIN
     Dosage: 0.14 UG, 1X/DAY
     Route: 041
     Dates: start: 20191111, end: 20191128

REACTIONS (7)
  - Rash [Recovering/Resolving]
  - Heart rate increased [Unknown]
  - Off label use [Unknown]
  - Product use in unapproved indication [Unknown]
  - Erythema [Unknown]
  - Swelling of eyelid [Unknown]
  - Flushing [Unknown]

NARRATIVE: CASE EVENT DATE: 20191123
